FAERS Safety Report 22110277 (Version 1)
Quarter: 2023Q1

REPORT INFORMATION
  Report Type: Spontaneous
  Country: DK (occurrence: DK)
  Receive Date: 20230317
  Receipt Date: 20230317
  Transmission Date: 20230418
  Serious: Yes (Other)
  Sender: FDA-Public Use
  Company Number: None

PATIENT
  Age: 63 Year
  Sex: Male
  Weight: 88 kg

DRUGS (6)
  1. IBUPROFEN [Suspect]
     Active Substance: IBUPROFEN
     Indication: Arthritis
     Dosage: DOSAGE: 400 MG AS NECESSARY MAXIMUM THREE TIMES DAILY,
     Route: 065
     Dates: start: 20210928
  2. LOSARTAN ^MEDICAL VALLEY^ [Concomitant]
     Indication: Hypertension
     Route: 065
     Dates: start: 20200302
  3. ROSUVASTATIN ^KRKA D.D.^ [Concomitant]
     Indication: Cardiovascular event prophylaxis
     Route: 065
     Dates: start: 20190705
  4. AMLODIPINE ^ACCORD^ [Concomitant]
     Indication: Hypertension
     Route: 065
     Dates: start: 20190705
  5. CALCIUM OG D-VITAMIN [Concomitant]
     Indication: Vitamin D deficiency
     Route: 065
     Dates: start: 20180307
  6. FLUOCORTOLONE PIVALATE\LIDOCAINE HYDROCHLORIDE [Concomitant]
     Active Substance: FLUOCORTOLONE PIVALATE\LIDOCAINE HYDROCHLORIDE
     Indication: Haemorrhoids
     Route: 065
     Dates: start: 20201110

REACTIONS (3)
  - Feeling abnormal [Recovered/Resolved]
  - Altered state of consciousness [Recovered/Resolved]
  - Dizziness [Recovered/Resolved]

NARRATIVE: CASE EVENT DATE: 20210930
